FAERS Safety Report 19704120 (Version 1)
Quarter: 2021Q3

REPORT INFORMATION
  Report Type: Spontaneous
  Country: US (occurrence: US)
  Receive Date: 20210814
  Receipt Date: 20210814
  Transmission Date: 20211014
  Serious: No
  Sender: FDA-Public Use
  Company Number: None

PATIENT
  Age: 12 Year
  Sex: Male
  Weight: 54 kg

DRUGS (1)
  1. OPEN NATURE SPF 50 MINERAL SUNSCREEN [Suspect]
     Active Substance: ZINC OXIDE
     Indication: PROPHYLAXIS AGAINST SOLAR RADIATION
     Dosage: ?          OTHER STRENGTH:SPF;QUANTITY:3 OUNCE(S);OTHER FREQUENCY:APPLY AS NEEDED;?
     Route: 061
     Dates: start: 20210812, end: 20210812

REACTIONS (6)
  - Application site erythema [None]
  - Dermatitis contact [None]
  - Application site swelling [None]
  - Application site pruritus [None]
  - Application site pain [None]
  - Application site rash [None]

NARRATIVE: CASE EVENT DATE: 20210812
